FAERS Safety Report 7150166-8 (Version None)
Quarter: 2010Q4

REPORT INFORMATION
  Report Type: 
  Country: None (occurrence: None)
  Receive Date: 20101124
  Receipt Date: 20101118
  Transmission Date: 20110411
  Serious: Yes (Hospitalization, Other)
  Sender: FDA-Public Use
  Company Number: 2010SP017466

PATIENT
  Age: 27 Year
  Sex: Female
  Weight: 113.3993 kg

DRUGS (1)
  1. NUVARING [Suspect]
     Indication: OVARIAN CYST
     Dates: start: 20080501, end: 20080701

REACTIONS (58)
  - ACUTE SINUSITIS [None]
  - ANKLE FRACTURE [None]
  - ANTIPHOSPHOLIPID SYNDROME [None]
  - ANXIETY [None]
  - APHASIA [None]
  - BRONCHITIS [None]
  - BRONCHOSPASM [None]
  - CARDIAC VALVE DISEASE [None]
  - CARDIAC VALVE VEGETATION [None]
  - COAGULOPATHY [None]
  - CONDITION AGGRAVATED [None]
  - COOMBS TEST POSITIVE [None]
  - DECREASED APPETITE [None]
  - DEEP VEIN THROMBOSIS [None]
  - DEPRESSION [None]
  - DOUBLE STRANDED DNA ANTIBODY POSITIVE [None]
  - ERYTHEMA [None]
  - HAEMOPTYSIS [None]
  - HAEMORRHAGIC DISORDER [None]
  - HAEMORRHAGIC OVARIAN CYST [None]
  - HEADACHE [None]
  - HILAR LYMPHADENOPATHY [None]
  - IMMUNODEFICIENCY [None]
  - INFECTIOUS MONONUCLEOSIS [None]
  - INTERNATIONAL NORMALISED RATIO DECREASED [None]
  - IRON DEFICIENCY [None]
  - LOSS OF EMPLOYMENT [None]
  - LUNG INFILTRATION [None]
  - LUNG NEOPLASM [None]
  - MEMORY IMPAIRMENT [None]
  - MITRAL VALVE INCOMPETENCE [None]
  - NAUSEA [None]
  - OEDEMA PERIPHERAL [None]
  - OVARIAN CYSTECTOMY [None]
  - PAIN [None]
  - PAIN IN EXTREMITY [None]
  - PANCYTOPENIA [None]
  - PLEURISY [None]
  - PLEURITIC PAIN [None]
  - PNEUMONIA [None]
  - POST-TRAUMATIC STRESS DISORDER [None]
  - PULMONARY EMBOLISM [None]
  - PYREXIA [None]
  - QUALITY OF LIFE DECREASED [None]
  - RHEUMATOID ARTHRITIS [None]
  - SEPTIC EMBOLUS [None]
  - SKIN DISORDER [None]
  - SPLINTER HAEMORRHAGES [None]
  - STREPTOCOCCUS TEST POSITIVE [None]
  - SUBACUTE ENDOCARDITIS [None]
  - SYSTEMIC LUPUS ERYTHEMATOSUS [None]
  - THROMBOSIS [None]
  - TRANSIENT ISCHAEMIC ATTACK [None]
  - TRICUSPID VALVE INCOMPETENCE [None]
  - UPPER RESPIRATORY TRACT INFECTION [None]
  - VISUAL IMPAIRMENT [None]
  - VITAMIN B12 DEFICIENCY [None]
  - VOMITING [None]
